FAERS Safety Report 6937771-6 (Version None)
Quarter: 2010Q3

REPORT INFORMATION
  Report Type: 
  Country: None (occurrence: None)
  Receive Date: 20100823
  Receipt Date: 20100823
  Transmission Date: 20110219
  Serious: Yes (Other)
  Sender: FDA-Public Use
  Company Number: None

PATIENT
  Sex: Female
  Weight: 57.3 kg

DRUGS (5)
  1. IXABEPILONE [Suspect]
     Indication: BREAST CANCER
     Dosage: 16MG/M2 ON DAYS 2,9 + 16
     Dates: end: 20100810
  2. VORINOSTAT [Suspect]
     Indication: BREAST CANCER
     Dosage: PO DAILY ON DAYS 1-7 + 15
     Route: 048
     Dates: end: 20100814
  3. WARFARIN SODIUM [Concomitant]
  4. HALCION [Concomitant]
  5. VICODIN [Concomitant]

REACTIONS (10)
  - ASTHENIA [None]
  - DECREASED APPETITE [None]
  - DIARRHOEA [None]
  - DRY MOUTH [None]
  - DYSGEUSIA [None]
  - FEELING COLD [None]
  - FLUID INTAKE REDUCED [None]
  - HYPOPHAGIA [None]
  - PYREXIA [None]
  - WEIGHT DECREASED [None]
